FAERS Safety Report 12947649 (Version 1)
Quarter: 2016Q4

REPORT INFORMATION
  Report Type: Spontaneous
  Country: JP (occurrence: JP)
  Receive Date: 20161116
  Receipt Date: 20161116
  Transmission Date: 20170207
  Serious: Yes (Death, Other)
  Sender: FDA-Public Use
  Company Number: JP-ASTELLAS-2016US045028

PATIENT
  Sex: Male

DRUGS (1)
  1. AMBISOME [Suspect]
     Active Substance: AMPHOTERICIN B
     Indication: ABDOMINAL INFECTION
     Route: 042
     Dates: start: 201610

REACTIONS (1)
  - Abdominal infection [Fatal]

NARRATIVE: CASE EVENT DATE: 20161029
